FAERS Safety Report 5122372-5 (Version None)
Quarter: 2006Q4

REPORT INFORMATION
  Report Type: 
  Country: None (occurrence: None)
  Receive Date: 20061004
  Receipt Date: 20060922
  Transmission Date: 20070319
  Serious: No
  Sender: FDA-Public Use
  Company Number: 06H-163-0310414-00

PATIENT

DRUGS (1)
  1. MARCAINE AND EPINEPHRINE FOR INJECTION (MARCAINE BUPIVACAINE HCL/EPINE [Suspect]
     Indication: PROCEDURAL PAIN
     Dosage: 4.16 CC/HOUR, INTRA-ARTICULAR
     Route: 014

REACTIONS (1)
  - CHONDROLYSIS [None]
